FAERS Safety Report 24453703 (Version 2)
Quarter: 2024Q4

REPORT INFORMATION
  Report Type: Report from Study
  Country: US (occurrence: US)
  Receive Date: 20241017
  Receipt Date: 20241018
  Transmission Date: 20250115
  Serious: No
  Sender: ROCHE
  Company Number: US-ROCHE-3329945

PATIENT
  Age: 59 Year
  Sex: Female

DRUGS (15)
  1. RITUXAN [Suspect]
     Active Substance: RITUXIMAB
     Indication: Dermatomyositis
     Dosage: INFUSE 1000MG INTRAVENOUSLY ON DAY(S) 0 AND DAY(S) 14
     Route: 041
     Dates: start: 20230518
  2. RITUXAN [Suspect]
     Active Substance: RITUXIMAB
     Dosage: INFUSE 1000MG INTRAVENOUSLY ON DAY(S) 0 AND DAY(S) 14
     Route: 041
     Dates: start: 20230327, end: 20240327
  3. MUPIROCIN [Concomitant]
     Active Substance: MUPIROCIN
     Route: 061
  4. HYDROCODONE [Concomitant]
     Active Substance: HYDROCODONE
  5. CLOBETASOL [Concomitant]
     Active Substance: CLOBETASOL
     Route: 061
  6. MOMETASONE [Concomitant]
     Active Substance: MOMETASONE
     Route: 061
  7. METFORMIN [Concomitant]
     Active Substance: METFORMIN HYDROCHLORIDE
  8. CHLORTHALIDONE [Concomitant]
     Active Substance: CHLORTHALIDONE
  9. ENALAPRIL MALEATE [Concomitant]
     Active Substance: ENALAPRIL MALEATE
     Route: 048
  10. FOLIC ACID [Concomitant]
     Active Substance: FOLIC ACID
     Route: 048
  11. HYDROXYCHLOROQUINE [Concomitant]
     Active Substance: HYDROXYCHLOROQUINE
     Route: 048
  12. METHOTREXATE SODIUM [Concomitant]
     Active Substance: METHOTREXATE SODIUM
     Route: 048
  13. SERTRALINE [Concomitant]
     Active Substance: SERTRALINE HYDROCHLORIDE
  14. PREDNISONE [Concomitant]
     Active Substance: PREDNISONE
     Dosage: 1 TABLET EVERY MORNING 30 DAYS
  15. PREDNISONE [Concomitant]
     Active Substance: PREDNISONE
     Dosage: ONE HALF TABLET BY MOUTH EVERY DAY ALONG WITH ONE 10 MG  TABLET FOR 30 DAY
     Route: 048

REACTIONS (2)
  - Off label use [Unknown]
  - No adverse event [Unknown]
